FAERS Safety Report 5239029-2 (Version None)
Quarter: 2007Q1

REPORT INFORMATION
  Report Type: 
  Country: None (occurrence: None)
  Receive Date: 20061208
  Receipt Date: 20050623
  Transmission Date: 20070707
  Serious: Yes (Other)
  Sender: FDA-Public Use
  Company Number: 2005UW09608

PATIENT
  Age: 83 Year
  Sex: Male
  Weight: 78.925 kg

DRUGS (3)
  1. CRESTOR [Suspect]
     Indication: BLOOD CHOLESTEROL INCREASED
     Dosage: 5 MG QD PO
     Route: 048
  2. ASPIRIN [Concomitant]
  3. PRILOSEC [Concomitant]

REACTIONS (1)
  - VISUAL ACUITY REDUCED [None]
